FAERS Safety Report 14700573 (Version 4)
Quarter: 2018Q2

REPORT INFORMATION
  Report Type: Spontaneous
  Country: BR (occurrence: BR)
  Receive Date: 20180330
  Receipt Date: 20180525
  Transmission Date: 20180711
  Serious: Yes (Other)
  Sender: FDA-Public Use
  Company Number: BR-ASTRAZENECA-2018SE39016

PATIENT
  Age: 809 Month
  Sex: Male
  Weight: 106 kg

DRUGS (15)
  1. LIRAGLUTIDE [Concomitant]
     Active Substance: LIRAGLUTIDE
  2. XIGDUO XR [Suspect]
     Active Substance: DAPAGLIFLOZIN PROPANEDIOL\METFORMIN HYDROCHLORIDE
     Indication: TYPE 2 DIABETES MELLITUS
     Route: 048
     Dates: start: 201711
  3. SAXENDA - VICTOZA [Concomitant]
     Dates: start: 201711
  4. DAFLON [Concomitant]
  5. SAXENDA - VICTOZA [Concomitant]
     Dates: start: 201802
  6. XENICAL [Concomitant]
     Active Substance: ORLISTAT
  7. GLIFAGE [Concomitant]
     Active Substance: METFORMIN HYDROCHLORIDE
  8. PREDNISONE. [Concomitant]
     Active Substance: PREDNISONE
     Indication: BLOOD PRESSURE INCREASED
     Dosage: 20 MG FOR 5 DAYS UNKNOWN
  9. TESTOSTERONE UNDECANOATE [Concomitant]
     Active Substance: TESTOSTERONE UNDECANOATE
     Dates: start: 201712
  10. SAXENDA - VICTOZA [Concomitant]
     Dates: start: 201712
  11. XIGDUO XR [Suspect]
     Active Substance: DAPAGLIFLOZIN PROPANEDIOL\METFORMIN HYDROCHLORIDE
     Indication: TYPE 2 DIABETES MELLITUS
     Dosage: 10/1000 MG
     Route: 048
     Dates: start: 201802
  12. OMEPRAZOLE. [Suspect]
     Active Substance: OMEPRAZOLE
     Route: 048
     Dates: start: 201712
  13. PREDNISONE. [Concomitant]
     Active Substance: PREDNISONE
     Indication: BLOOD PRESSURE INCREASED
     Dosage: 40.0MG UNKNOWN
  14. TESTOSTERONE. [Concomitant]
     Active Substance: TESTOSTERONE
  15. XIGDUO XR [Suspect]
     Active Substance: DAPAGLIFLOZIN PROPANEDIOL\METFORMIN HYDROCHLORIDE
     Indication: TYPE 2 DIABETES MELLITUS
     Route: 048
     Dates: start: 201712

REACTIONS (7)
  - Proteinuria [Recovered/Resolved]
  - Hypersensitivity vasculitis [Not Recovered/Not Resolved]
  - Tubulointerstitial nephritis [Unknown]
  - Haematuria [Recovered/Resolved]
  - Renal impairment [Recovered/Resolved]
  - Blood pressure increased [Unknown]
  - Petechiae [Not Recovered/Not Resolved]

NARRATIVE: CASE EVENT DATE: 201712
